FAERS Safety Report 7092907-4 (Version None)
Quarter: 2010Q4

REPORT INFORMATION
  Report Type: 
  Country: None (occurrence: None)
  Receive Date: 20101018
  Receipt Date: 20091007
  Transmission Date: 20110411
  Serious: Yes (Hospitalization)
  Sender: FDA-Public Use
  Company Number: 2009S1000414

PATIENT
  Age: 61 Year
  Sex: Female
  Weight: 118.3888 kg

DRUGS (15)
  1. DARVOCET-N 100 [Suspect]
     Dosage: Q6H; PO
     Route: 048
     Dates: end: 20080626
  2. SUNITINIB MALATE [Suspect]
     Indication: METASTATIC RENAL CELL CARCINOMA
     Dosage: 50 MG; QD
     Dates: start: 20080412
  3. LORTAB [Suspect]
     Dosage: 7.5 MG; QID; PO
     Route: 048
     Dates: start: 20061030
  4. OXYCODONE HCL [Suspect]
     Dosage: 5 MG; QID; PO
     Route: 048
     Dates: end: 20090626
  5. BACTRIM [Concomitant]
  6. ACTOS [Concomitant]
  7. CYMBALTA [Concomitant]
  8. NEXIUM [Concomitant]
  9. GLUCOVANCE [Concomitant]
  10. LASIX [Concomitant]
  11. PROMETHAZINE [Concomitant]
  12. LIPITOR [Concomitant]
  13. MONTELUKAST SODIUM [Concomitant]
  14. IRON [Concomitant]
  15. ALBUTEROL [Concomitant]

REACTIONS (3)
  - CONFUSIONAL STATE [None]
  - NAUSEA [None]
  - VOMITING [None]
